FAERS Safety Report 10274072 (Version 2)
Quarter: 2015Q2

REPORT INFORMATION
  Report Type: Spontaneous
  Country: US (occurrence: US)
  Receive Date: 20140702
  Receipt Date: 20150615
  Transmission Date: 20150821
  Serious: Yes (Hospitalization, Other)
  Sender: FDA-Public Use
  Company Number: US-BAYER-2014-096683

PATIENT
  Age: 26 Year
  Sex: Female

DRUGS (29)
  1. METOPROLOL [Concomitant]
     Active Substance: METOPROLOL
     Dosage: 25 MG, BID
     Dates: start: 20120605
  2. IMITREX [Concomitant]
     Active Substance: SUMATRIPTAN\SUMATRIPTAN SUCCINATE
     Dosage: 25-100 MG DAILY AS NEEDED
     Dates: start: 20120618
  3. FLONASE [Concomitant]
     Active Substance: FLUTICASONE PROPIONATE
     Indication: CHRONIC SINUSITIS
     Dosage: 2 SPRAYS/NOSTRIL EVERY EVENING
     Dates: start: 20120618
  4. XANAX [Concomitant]
     Active Substance: ALPRAZOLAM
     Dosage: 0.5 MG, BID, AS NEEDED
     Dates: start: 20120618
  5. PROPANOLOL [Concomitant]
     Active Substance: PROPRANOLOL HYDROCHLORIDE
     Dosage: 10 MG, DAILY
     Dates: start: 20120605
  6. TOPAMAX [Concomitant]
     Active Substance: TOPIRAMATE
     Dosage: 100 MG, Q HS
     Dates: start: 20120713
  7. MIRENA [Suspect]
     Active Substance: LEVONORGESTREL
     Dosage: 20 MCG/24HR, CONT
     Route: 015
     Dates: start: 200901
  8. PAXIL [Concomitant]
     Active Substance: PAROXETINE HYDROCHLORIDE
     Dosage: 20 MG, DAILY
     Dates: start: 20120605
  9. ZYRTEC [Concomitant]
     Active Substance: CETIRIZINE HYDROCHLORIDE
     Indication: CHRONIC SINUSITIS
     Dosage: DAILY
     Dates: start: 20120618
  10. NORCO [Concomitant]
     Active Substance: ACETAMINOPHEN\HYDROCODONE BITARTRATE
     Dosage: 325 MG- 10 MG TID FOR 2 WEEKS
     Dates: start: 20120621
  11. PHENERGAN [Concomitant]
     Active Substance: PROMETHAZINE HYDROCHLORIDE
     Dosage: 25 MG, BID
     Dates: start: 20120713
  12. FIORICET [Concomitant]
     Active Substance: ACETAMINOPHEN\BUTALBITAL\CAFFEINE
     Indication: PAIN
     Dosage: UNK
     Dates: start: 20120605
  13. NORVASC [Concomitant]
     Active Substance: AMLODIPINE BESYLATE
     Dosage: 5 MG, QD
     Dates: start: 20120629
  14. ACETAZOLAMIDE. [Concomitant]
     Active Substance: ACETAZOLAMIDE
     Dosage: 250 MG 2 PILLS BY MOUTH BID
     Dates: start: 20120713
  15. HYDROCODONE W/ACETAMINOPHEN [Concomitant]
     Active Substance: ACETAMINOPHEN\HYDROCODONE BITARTRATE
     Indication: PAIN
     Dosage: 7.5-325 MG, 1 TO 2 TABLETS EVERY 6 HOURS AS NEEDED
     Route: 048
  16. ONDANSETRON [Concomitant]
     Active Substance: ONDANSETRON
     Indication: NAUSEA
     Dosage: 4 MG, UEVERY 6 HOURS AS NEEDEDNK
     Route: 048
  17. PROCHLORPERAZINE. [Concomitant]
     Active Substance: PROCHLORPERAZINE
     Indication: NAUSEA
     Dosage: 10 MG BY MOUTH EVERY 6 HOURS AS NEEDED
     Route: 048
  18. PROCHLORPERAZINE. [Concomitant]
     Active Substance: PROCHLORPERAZINE
     Indication: VOMITING
  19. HYDROCHLOROTHIAZIDE. [Concomitant]
     Active Substance: HYDROCHLOROTHIAZIDE
     Dosage: 12.5 MG, DAILY
     Dates: start: 20120605
  20. LISINOPRIL. [Concomitant]
     Active Substance: LISINOPRIL
     Dosage: 10 -40 MG QD
     Dates: start: 20120605
  21. LISINOPRIL. [Concomitant]
     Active Substance: LISINOPRIL
     Dosage: 10 -40 MG QD
     Dates: start: 20120629
  22. PROZAC [Concomitant]
     Active Substance: FLUOXETINE HYDROCHLORIDE
     Dosage: 20 MG, QD
     Dates: start: 20120629
  23. MIRENA [Suspect]
     Active Substance: LEVONORGESTREL
     Dosage: 20 MCG/24HR, CONT
     Route: 015
     Dates: start: 20101123
  24. FIORICET [Concomitant]
     Active Substance: ACETAMINOPHEN\BUTALBITAL\CAFFEINE
     Indication: PAIN
     Dosage: 50-32-40 MG, 1 TO 2 TABLETS EVERY 6 HOURS AS NEEDED
     Route: 048
  25. HYDROCODONE W/ACETAMINOPHEN [Concomitant]
     Active Substance: ACETAMINOPHEN\HYDROCODONE BITARTRATE
     Indication: PAIN
     Dosage: 5-325 MG, 1 TO 2 TABLETS EVERY 6 HOURS AS NEEDED
     Route: 048
  26. CLONIDINE. [Concomitant]
     Active Substance: CLONIDINE
     Dosage: 0.2 MG, BID
     Route: 048
  27. KLONOPIN [Concomitant]
     Active Substance: CLONAZEPAM
     Dosage: 0.5 MG, QD; PRN
     Dates: start: 20120605
  28. IMITREX [Concomitant]
     Active Substance: SUMATRIPTAN\SUMATRIPTAN SUCCINATE
     Dosage: 25-100 MG DAILY AS NEEDED
     Dates: start: 20120629
  29. AMOXICILLIN. [Concomitant]
     Active Substance: AMOXICILLIN
     Indication: CHRONIC SINUSITIS
     Dosage: 875 MG, BID, FOR 10 DAYS
     Dates: start: 20120618

REACTIONS (11)
  - Injury [None]
  - Visual impairment [None]
  - Migraine [None]
  - Papilloedema [None]
  - Nausea [None]
  - Dizziness [None]
  - Vision blurred [None]
  - Intracranial pressure increased [None]
  - Pain [None]
  - Embedded device [None]
  - Tinnitus [None]

NARRATIVE: CASE EVENT DATE: 20120605
